FAERS Safety Report 9140251 (Version 1)
Quarter: 2013Q1

REPORT INFORMATION
  Report Type: Spontaneous
  Country: ES (occurrence: ES)
  Receive Date: 20130305
  Receipt Date: 20130305
  Transmission Date: 20140127
  Serious: Yes (Other)
  Sender: FDA-Public Use
  Company Number: PHHY2013ES021309

PATIENT
  Age: 37 Year
  Sex: Female

DRUGS (1)
  1. GILENYA [Suspect]
     Indication: MULTIPLE SCLEROSIS
     Dosage: 0.5 MG, QD
     Route: 048
     Dates: start: 20120928, end: 20121030

REACTIONS (8)
  - Ventricular tachycardia [Recovered/Resolved]
  - Bradycardia [Unknown]
  - Electrocardiogram abnormal [Unknown]
  - Ventricular extrasystoles [Recovered/Resolved]
  - Blood pressure decreased [Unknown]
  - Fatigue [Unknown]
  - Discomfort [Unknown]
  - Dizziness [Unknown]
